FAERS Safety Report 8280042-9 (Version None)
Quarter: 2012Q2

REPORT INFORMATION
  Report Type: 
  Country: None (occurrence: None)
  Receive Date: 20120412
  Receipt Date: 20120213
  Transmission Date: 20120825
  Serious: No
  Sender: FDA-Public Use
  Company Number: US-ASTRAZENECA-2012SE04964

PATIENT
  Age: 51 Year
  Sex: Female
  Weight: 105.7 kg

DRUGS (6)
  1. PERCOCET [Concomitant]
     Indication: PAIN
  2. TOPORAL [Concomitant]
     Indication: HYPERTENSION
  3. NEXIUM [Suspect]
     Indication: GASTROOESOPHAGEAL REFLUX DISEASE
     Route: 048
  4. NEXIUM [Suspect]
     Route: 048
  5. CYMBALTA [Concomitant]
  6. REGLAN [Concomitant]
     Indication: GASTRIC DISORDER

REACTIONS (4)
  - GASTRITIS [None]
  - DRUG DOSE OMISSION [None]
  - OFF LABEL USE [None]
  - GASTRIC INFECTION [None]
